FAERS Safety Report 13445954 (Version 1)
Quarter: 2017Q2

REPORT INFORMATION
  Report Type: Spontaneous
  Country: US (occurrence: US)
  Receive Date: 20170417
  Receipt Date: 20170417
  Transmission Date: 20170830
  Serious: No
  Sender: FDA-Public Use
  Company Number: US-BION-006005

PATIENT
  Sex: Female

DRUGS (1)
  1. ALEVE [Suspect]
     Active Substance: NAPROXEN SODIUM
     Indication: PRODUCT USED FOR UNKNOWN INDICATION
     Dosage: UPTO 13-FEB-2017
     Route: 048
     Dates: start: 20170212

REACTIONS (1)
  - Extra dose administered [Not Recovered/Not Resolved]

NARRATIVE: CASE EVENT DATE: 20170212
